FAERS Safety Report 24351610 (Version 1)
Quarter: 2024Q3

REPORT INFORMATION
  Report Type: Report from Study
  Country: IN (occurrence: IN)
  Receive Date: 20240923
  Receipt Date: 20240923
  Transmission Date: 20241016
  Serious: No
  Sender: ROCHE
  Company Number: IN-ROCHE-3557152

PATIENT
  Age: 71 Year
  Sex: Female

DRUGS (1)
  1. TRASTUZUMAB [Suspect]
     Active Substance: TRASTUZUMAB
     Indication: Breast cancer
     Dosage: FREQUENCY REPORTED AS 21 ONLY?FORM OF ADMIN REPORTED AS VIAL.
     Route: 042
     Dates: start: 20231020

REACTIONS (2)
  - Pyrexia [Recovered/Resolved with Sequelae]
  - Oropharyngeal pain [Recovered/Resolved with Sequelae]
